FAERS Safety Report 24617288 (Version 2)
Quarter: 2025Q1

REPORT INFORMATION
  Report Type: Spontaneous
  Country: US (occurrence: US)
  Receive Date: 20241114
  Receipt Date: 20250106
  Transmission Date: 20250408
  Serious: No
  Sender: ALEXION PHARMACEUTICALS
  Company Number: US-AstraZeneca-CH-00727064AP

PATIENT
  Age: 97 Year

DRUGS (1)
  1. BREZTRI [Suspect]
     Active Substance: BUDESONIDE\FORMOTEROL\GLYCOPYRROLATE

REACTIONS (4)
  - Tremor [Unknown]
  - Product preparation error [Not Recovered/Not Resolved]
  - Product dose omission issue [Unknown]
  - Product quality issue [Not Recovered/Not Resolved]
